FAERS Safety Report 18899691 (Version 1)
Quarter: 2021Q1

REPORT INFORMATION
  Report Type: Spontaneous
  Country: DE (occurrence: DE)
  Receive Date: 20210216
  Receipt Date: 20210216
  Transmission Date: 20210420
  Serious: Yes (Life-Threatening, Other)
  Sender: FDA-Public Use
  Company Number: NVSC2021DE036116

PATIENT
  Age: 65 Year
  Sex: Female
  Weight: 92 kg

DRUGS (2)
  1. OXALIPLATIN HEXAL [Suspect]
     Active Substance: OXALIPLATIN
     Indication: NEOADJUVANT THERAPY
     Dosage: 85 MG/M2 (179 MG, ENTSPRICHT 85 MG/QM)
     Route: 042
     Dates: start: 20191016, end: 20191030
  2. OXALIPLATIN HEXAL [Suspect]
     Active Substance: OXALIPLATIN
     Indication: OESOPHAGEAL ADENOCARCINOMA

REACTIONS (4)
  - Dyspnoea [Recovered/Resolved]
  - Blood pressure systolic increased [Recovered/Resolved]
  - Stridor [Recovered/Resolved]
  - Chest discomfort [Recovered/Resolved]

NARRATIVE: CASE EVENT DATE: 20191030
